FAERS Safety Report 6608094-X (Version None)
Quarter: 2010Q1

REPORT INFORMATION
  Report Type: 
  Country: None (occurrence: None)
  Receive Date: 20100301
  Receipt Date: 20100222
  Transmission Date: 20100710
  Serious: Yes (Hospitalization, Other)
  Sender: FDA-Public Use
  Company Number: FR-BRISTOL-MYERS SQUIBB COMPANY-14936801

PATIENT
  Age: 48 Year
  Sex: Male
  Weight: 61 kg

DRUGS (5)
  1. REYATAZ [Suspect]
     Route: 048
     Dates: start: 20040524, end: 20090611
  2. NORVIR [Concomitant]
     Indication: HIV INFECTION
     Route: 048
     Dates: start: 20040524
  3. ZIAGEN [Concomitant]
     Route: 048
     Dates: start: 20040524
  4. VIDEX [Concomitant]
     Route: 048
     Dates: start: 20040524
  5. RIVOTRIL [Concomitant]
     Route: 048
     Dates: start: 20040524

REACTIONS (3)
  - NEPHROLITHIASIS [None]
  - PYONEPHROSIS [None]
  - RENAL COLIC [None]
